FAERS Safety Report 8904744 (Version 1)
Quarter: 2012Q4

REPORT INFORMATION
  Report Type: 
  Country: US (occurrence: US)
  Receive Date: 20121113
  Receipt Date: 20121113
  Transmission Date: 20130627
  Serious: No
  Sender: FDA-Public Use
  Company Number: US-ASTRAZENECA-2012SE82685

PATIENT
  Age: 43 Year
  Sex: Male

DRUGS (6)
  1. NEXIUM [Suspect]
     Route: 048
  2. FLONASE [Concomitant]
  3. LISINOPRIL [Concomitant]
  4. CHANTIX [Concomitant]
  5. LORATADINE [Concomitant]
     Indication: HYPERSENSITIVITY
  6. LISINOPRIL-HYDROCHLOROTHIAZIDE [Concomitant]

REACTIONS (4)
  - Rhinitis allergic [Unknown]
  - Change of bowel habit [Unknown]
  - Pain [Unknown]
  - Sinusitis [Unknown]
